FAERS Safety Report 9713483 (Version 2)
Quarter: 2013Q4

REPORT INFORMATION
  Report Type: Spontaneous
  Country: JP (occurrence: JP)
  Receive Date: 20131126
  Receipt Date: 20131212
  Transmission Date: 20140711
  Serious: Yes (Hospitalization)
  Sender: FDA-Public Use
  Company Number: JP-SA-2013SA121785

PATIENT
  Age: 69 Year
  Sex: Female
  Weight: 50 kg

DRUGS (13)
  1. ELPLAT [Suspect]
     Indication: RECTAL CANCER
     Route: 041
     Dates: start: 20130813, end: 20130813
  2. ELPLAT [Suspect]
     Indication: RECTAL CANCER
     Route: 041
     Dates: start: 20130903, end: 20130903
  3. ELPLAT [Suspect]
     Indication: RECTAL CANCER
     Route: 041
     Dates: start: 20130924, end: 20130924
  4. ELPLAT [Suspect]
     Indication: RECTAL CANCER
     Route: 041
     Dates: start: 20131015, end: 20131015
  5. ELPLAT [Suspect]
     Indication: RECTAL CANCER
     Route: 041
     Dates: start: 20131105, end: 20131105
  6. XELODA [Suspect]
     Indication: RECTAL CANCER
     Route: 048
     Dates: start: 20130813
  7. XELODA [Suspect]
     Indication: RECTAL CANCER
     Route: 048
     Dates: start: 20131105, end: 20131109
  8. XELODA [Suspect]
     Indication: RECTAL CANCER
     Route: 048
     Dates: start: 20130903
  9. XELODA [Suspect]
     Indication: RECTAL CANCER
     Route: 048
     Dates: start: 20130924
  10. XELODA [Suspect]
     Indication: RECTAL CANCER
     Route: 048
     Dates: start: 20131015
  11. DECADRON [Concomitant]
     Dates: start: 20131106, end: 20131108
  12. RINGER-ACETAT SPECIAL [Concomitant]
     Dates: start: 20131109
  13. AMINOLEBAN [Concomitant]
     Dates: start: 20131109

REACTIONS (3)
  - Hyperammonaemia [Recovering/Resolving]
  - Depressed level of consciousness [Recovered/Resolved]
  - Aphasia [Recovered/Resolved]
